FAERS Safety Report 15296401 (Version 1)
Quarter: 2018Q3

REPORT INFORMATION
  Report Type: Spontaneous
  Country: US (occurrence: US)
  Receive Date: 20180820
  Receipt Date: 20180820
  Transmission Date: 20181010
  Serious: No
  Sender: FDA-Public Use
  Company Number: US-BAYER-2018-150590

PATIENT

DRUGS (1)
  1. GADAVIST [Suspect]
     Active Substance: GADOBUTROL
     Indication: NUCLEAR MAGNETIC RESONANCE IMAGING
     Dosage: UNK, ONCE

REACTIONS (6)
  - Skin burning sensation [None]
  - Sleep disorder [None]
  - Pain in extremity [None]
  - Alopecia [None]
  - Muscle spasms [None]
  - Muscle twitching [None]
